FAERS Safety Report 17221533 (Version 2)
Quarter: 2020Q1

REPORT INFORMATION
  Report Type: Spontaneous
  Country: CH (occurrence: CH)
  Receive Date: 20200101
  Receipt Date: 20200111
  Transmission Date: 20200409
  Serious: Yes (Other)
  Sender: FDA-Public Use
  Company Number: CH-AMGEN-CHESP2019217112

PATIENT
  Age: 55 Year
  Sex: Female

DRUGS (3)
  1. MELOXICAM. [Concomitant]
     Active Substance: MELOXICAM
     Indication: RHEUMATOID ARTHRITIS
     Dosage: UNK
  2. ETANERCEPT [Suspect]
     Active Substance: ETANERCEPT
     Indication: RHEUMATOID ARTHRITIS
     Dosage: UNK
     Route: 065
  3. MELOXICAM. [Concomitant]
     Active Substance: MELOXICAM
     Dosage: UNK

REACTIONS (12)
  - Ventricular extrasystoles [Recovered/Resolved]
  - Cardiogenic shock [Recovering/Resolving]
  - Brain natriuretic peptide increased [Unknown]
  - Cardiomegaly [Recovering/Resolving]
  - Inflammatory marker increased [Unknown]
  - Blood creatine increased [Unknown]
  - Cardiac arrest [Recovered/Resolved]
  - Pulmonary congestion [Recovering/Resolving]
  - Myocarditis [Recovering/Resolving]
  - Pulmonary oedema [Recovering/Resolving]
  - Ventricular fibrillation [Recovered/Resolved]
  - Troponin increased [Unknown]
